FAERS Safety Report 12987538 (Version 1)
Quarter: 2016Q4

REPORT INFORMATION
  Report Type: Spontaneous
  Country: US (occurrence: US)
  Receive Date: 20161130
  Receipt Date: 20161130
  Transmission Date: 20170207
  Serious: Yes (Disabling)
  Sender: FDA-Public Use
  Company Number: None

PATIENT
  Age: 58 Year
  Sex: Female
  Weight: 56.75 kg

DRUGS (17)
  1. KLONIPIN [Concomitant]
     Active Substance: CLONAZEPAM
  2. COMBIPATCH [Concomitant]
     Active Substance: ESTRADIOL\NORETHINDRONE ACETATE
  3. FLEXRIL [Concomitant]
  4. ADVIL [Concomitant]
     Active Substance: IBUPROFEN
  5. VITAMIN D3 [Concomitant]
     Active Substance: CHOLECALCIFEROL
  6. B-12 COMPLEX [Concomitant]
  7. LORSTATIN [Concomitant]
  8. BACLOFEN. [Concomitant]
     Active Substance: BACLOFEN
  9. ZANAFLEX [Concomitant]
     Active Substance: TIZANIDINE HYDROCHLORIDE
  10. MIRALAX [Concomitant]
     Active Substance: POLYETHYLENE GLYCOL 3350
  11. MULTI VITAMIN [Concomitant]
     Active Substance: VITAMINS
  12. MAGN [Concomitant]
  13. ASPIRIN. [Concomitant]
     Active Substance: ASPIRIN
  14. LEVOFLOXACIN GENERIC FOR LEVAQUIN 500MG [Suspect]
     Active Substance: LEVOFLOXACIN
     Indication: URINARY TRACT INFECTION
     Dosage: ?          QUANTITY:RT (JUL! ~ 012,?_IST ANY;?
     Route: 048
     Dates: start: 20160901, end: 20160903
  15. SUBOXONE [Concomitant]
     Active Substance: BUPRENORPHINE HYDROCHLORIDE\NALOXONE HYDROCHLORIDE
  16. CYMBALTA [Concomitant]
     Active Substance: DULOXETINE HYDROCHLORIDE
  17. E [Concomitant]

REACTIONS (12)
  - Amnesia [None]
  - Feeling abnormal [None]
  - Movement disorder [None]
  - Balance disorder [None]
  - Tendonitis [None]
  - Fatigue [None]
  - Visual impairment [None]
  - Dysgraphia [None]
  - Toxicity to various agents [None]
  - Pain [None]
  - Depression [None]
  - Malaise [None]

NARRATIVE: CASE EVENT DATE: 20160903
